FAERS Safety Report 14823072 (Version 1)
Quarter: 2018Q2

REPORT INFORMATION
  Report Type: Spontaneous
  Country: GB (occurrence: GB)
  Receive Date: 20180427
  Receipt Date: 20180427
  Transmission Date: 20180711
  Serious: Yes (Death, Life-Threatening)
  Sender: FDA-Public Use
  Company Number: GB-CANTON LABORATORIES, LLC-2046761

PATIENT
  Age: 82 Year
  Sex: Male

DRUGS (7)
  1. FUROSEMIDE. [Concomitant]
     Active Substance: FUROSEMIDE
     Route: 065
  2. SIMVASTATIN. [Concomitant]
     Active Substance: SIMVASTATIN
     Route: 065
  3. CLONAZEPAM. [Concomitant]
     Active Substance: CLONAZEPAM
     Route: 065
  4. TRAMADOL. [Concomitant]
     Active Substance: TRAMADOL
     Route: 065
  5. PERINDOPRIL [Concomitant]
     Active Substance: PERINDOPRIL
     Route: 065
  6. NAPROSYN [Suspect]
     Active Substance: NAPROXEN
     Indication: PRODUCT USED FOR UNKNOWN INDICATION
     Route: 048
  7. WARFARIN SODIUM. [Suspect]
     Active Substance: WARFARIN SODIUM
     Route: 048
     Dates: start: 20140801, end: 20170213

REACTIONS (2)
  - International normalised ratio increased [Not Recovered/Not Resolved]
  - Haemorrhage intracranial [Fatal]

NARRATIVE: CASE EVENT DATE: 20170217
